FAERS Safety Report 5381787-0 (Version None)
Quarter: 2007Q3

REPORT INFORMATION
  Report Type: 
  Country: None (occurrence: None)
  Receive Date: 20070705
  Receipt Date: 20070705
  Transmission Date: 20080115
  Serious: Yes (Other)
  Sender: FDA-Public Use
  Company Number: None

PATIENT
  Sex: Female
  Weight: 108.8633 kg

DRUGS (1)
  1. CIPRO [Suspect]
     Indication: DIVERTICULITIS
     Dosage: 1,000 ONCE A DAY PO
     Route: 048
     Dates: start: 20070628, end: 20070630

REACTIONS (19)
  - ABDOMINAL DISTENSION [None]
  - ANXIETY [None]
  - DIARRHOEA [None]
  - DISCOMFORT [None]
  - DIZZINESS [None]
  - DYSPHAGIA [None]
  - EAR DISORDER [None]
  - FEELING ABNORMAL [None]
  - FLATULENCE [None]
  - GASTRIC DISORDER [None]
  - HEADACHE [None]
  - HEART RATE IRREGULAR [None]
  - JOINT SWELLING [None]
  - MIGRAINE [None]
  - PAIN IN EXTREMITY [None]
  - PARAESTHESIA [None]
  - SYNCOPE [None]
  - TREMOR [None]
  - VISUAL DISTURBANCE [None]
